FAERS Safety Report 5156379-9 (Version None)
Quarter: 2006Q4

REPORT INFORMATION
  Report Type: 
  Country: None (occurrence: None)
  Receive Date: 20061122
  Receipt Date: 20060914
  Transmission Date: 20070319
  Serious: Yes (Other)
  Sender: FDA-Public Use
  Company Number: GB-BRISTOL-MYERS SQUIBB COMPANY-13510391

PATIENT
  Age: 85 Year
  Sex: Female
  Weight: 55 kg

DRUGS (3)
  1. PRAVASTATIN [Suspect]
     Indication: HYPERCHOLESTEROLAEMIA
     Dates: start: 20010101
  2. CELIPROLOL [Concomitant]
     Indication: BLOOD PRESSURE INCREASED
     Route: 048
     Dates: start: 20020101, end: 20060920
  3. DOXAZOSIN MESYLATE [Concomitant]
     Indication: BLOOD PRESSURE INCREASED
     Route: 048
     Dates: start: 20010101

REACTIONS (5)
  - BACK PAIN [None]
  - FUNGAL INFECTION [None]
  - HERPES ZOSTER [None]
  - RASH [None]
  - SWOLLEN TONGUE [None]
